FAERS Safety Report 6827078-X (Version None)
Quarter: 2010Q3

REPORT INFORMATION
  Report Type: 
  Country: None (occurrence: None)
  Receive Date: 20100709
  Receipt Date: 20100702
  Transmission Date: 20110219
  Serious: Yes (Hospitalization)
  Sender: FDA-Public Use
  Company Number: JP-AMGEN-KDC392931

PATIENT
  Sex: Female
  Weight: 54 kg

DRUGS (9)
  1. DENOSUMAB [Suspect]
     Indication: METASTASES TO BONE
     Route: 058
     Dates: start: 20090803
  2. REBAMIPIDE [Concomitant]
     Indication: GASTRITIS PROPHYLAXIS
     Route: 048
     Dates: start: 20091026
  3. ZANTAC [Concomitant]
     Indication: PREMEDICATION
     Dosage: TIME OF ADMINISTRATION OF TAXOTERE
     Route: 042
     Dates: start: 20100201
  4. DEXAMETHASONE SODIUM PHOSPHATE [Concomitant]
     Indication: PREMEDICATION
     Dosage: TIME OF ADMINISTRATION OF TAXOTERE
     Route: 042
     Dates: start: 20100201
  5. GRANISETRON HYDROCHLORIDE [Concomitant]
     Indication: PREMEDICATION
     Dosage: TIME OF ADMINISTRATION OF TAXOTERE
     Route: 042
     Dates: start: 20100201
  6. TAXOTERE [Concomitant]
     Indication: BREAST CANCER METASTATIC
     Route: 042
     Dates: start: 20100201
  7. OXYCONTIN [Concomitant]
     Indication: INTRACRANIAL HYPOTENSION
     Route: 048
     Dates: start: 20080320
  8. CALCIUM CARBONATE [Concomitant]
     Indication: NUTRITIONAL SUPPORT
     Dosage: AS NEEDED
     Route: 048
     Dates: start: 20091026
  9. VITAMIN D [Concomitant]
     Indication: NUTRITIONAL SUPPORT
     Dosage: AS NEEDED
     Route: 048
     Dates: start: 20091026

REACTIONS (1)
  - OSTEOMYELITIS [None]
